FAERS Safety Report 7244662-2 (Version None)
Quarter: 2011Q1

REPORT INFORMATION
  Report Type: 
  Country: None (occurrence: None)
  Receive Date: 20110125
  Receipt Date: 20101229
  Transmission Date: 20110831
  Serious: No
  Sender: FDA-Public Use
  Company Number: US-MYLANLABS-2011S1000005

PATIENT
  Age: 31 Year
  Sex: Female

DRUGS (2)
  1. ZOLOFT [Concomitant]
  2. BUPROPION HYDROCHLORIDE [Suspect]
     Indication: DEPRESSION
     Route: 048
     Dates: start: 20100801

REACTIONS (4)
  - INCORRECT DOSE ADMINISTERED [None]
  - SWOLLEN TONGUE [None]
  - PRURITUS [None]
  - HEADACHE [None]
